FAERS Safety Report 25871239 (Version 3)
Quarter: 2025Q4

REPORT INFORMATION
  Report Type: Spontaneous
  Country: CO (occurrence: CO)
  Receive Date: 20251001
  Receipt Date: 20251121
  Transmission Date: 20260117
  Serious: No
  Sender: PFIZER
  Company Number: CO-PFIZER INC-PV202500110712

PATIENT
  Sex: Female

DRUGS (1)
  1. GENOTROPIN [Suspect]
     Active Substance: SOMATROPIN
     Dosage: 0.6 MG, DAILY

REACTIONS (4)
  - Injection site reaction [Unknown]
  - Fungal infection [Unknown]
  - Wrong technique in device usage process [Unknown]
  - Device leakage [Unknown]
